FAERS Safety Report 8381156-5 (Version None)
Quarter: 2012Q2

REPORT INFORMATION
  Report Type: 
  Country: None (occurrence: None)
  Receive Date: 20120523
  Receipt Date: 20120518
  Transmission Date: 20120825
  Serious: Yes (Other)
  Sender: FDA-Public Use
  Company Number: GB-JNJFOC-20120516829

PATIENT
  Sex: Female

DRUGS (2)
  1. SIMPONI [Suspect]
     Indication: ILL-DEFINED DISORDER
     Route: 058
     Dates: start: 20120504
  2. METHOTREXATE [Concomitant]

REACTIONS (3)
  - ABSCESS ORAL [None]
  - ARTHRITIS [None]
  - ORAL INFECTION [None]
